FAERS Safety Report 18685446 (Version 2)
Quarter: 2021Q1

REPORT INFORMATION
  Report Type: Report from Study
  Country: None (occurrence: US)
  Receive Date: 20201231
  Receipt Date: 20210212
  Transmission Date: 20210419
  Serious: Yes (Other)
  Sender: FDA-Public Use
  Company Number: US-ABBVIE-20K-163-3709009-00

PATIENT
  Sex: Female
  Weight: 113.5 kg

DRUGS (1)
  1. HUMIRA [Suspect]
     Active Substance: ADALIMUMAB
     Indication: PSORIASIS
     Dosage: CITRATE FREEE
     Route: 058
     Dates: start: 202012

REACTIONS (3)
  - Injection site erythema [Unknown]
  - Intestinal obstruction [Recovering/Resolving]
  - Injection site urticaria [Recovered/Resolved]
